FAERS Safety Report 24401015 (Version 4)
Quarter: 2024Q4

REPORT INFORMATION
  Report Type: Spontaneous
  Country: US (occurrence: US)
  Receive Date: 20241006
  Receipt Date: 20241205
  Transmission Date: 20250115
  Serious: Yes (Other)
  Sender: JOHNSON AND JOHNSON
  Company Number: US-BAYER-2024A140211

PATIENT
  Age: 52 Year
  Sex: Female
  Weight: 126.98 kg

DRUGS (31)
  1. RIVAROXABAN [Suspect]
     Active Substance: RIVAROXABAN
     Indication: Product used for unknown indication
     Route: 048
  2. ADEMPAS [Suspect]
     Active Substance: RIOCIGUAT
     Dosage: 0.5 MG, TID
     Route: 048
     Dates: start: 20240905
  3. ADEMPAS [Suspect]
     Active Substance: RIOCIGUAT
     Dosage: 1.0 MG, TID
     Route: 048
     Dates: end: 20241010
  4. ADEMPAS [Suspect]
     Active Substance: RIOCIGUAT
     Dosage: 0.5, TID
     Route: 048
     Dates: end: 20241010
  5. VITAMIN D2 [Concomitant]
     Active Substance: ERGOCALCIFEROL
  6. FOLIC ACID [Concomitant]
     Active Substance: FOLIC ACID
  7. NYSTATIN [Concomitant]
     Active Substance: NYSTATIN
  8. EPINEPHRINE [Concomitant]
     Active Substance: EPINEPHRINE
  9. LACTIC ACID [Concomitant]
     Active Substance: LACTIC ACID
  10. CYCLOBENZAPRINE HYDROCHLORIDE [Concomitant]
     Active Substance: CYCLOBENZAPRINE HYDROCHLORIDE
  11. ALBUTEROL SULFATE [Concomitant]
     Active Substance: ALBUTEROL SULFATE
  12. VITAMIN E [Concomitant]
     Active Substance: .ALPHA.-TOCOPHEROL
  13. ALBUTEROL SULFATE [Concomitant]
     Active Substance: ALBUTEROL SULFATE
  14. HYDROXYZINE HYDROCHLORIDE [Concomitant]
     Active Substance: HYDROXYZINE HYDROCHLORIDE
  15. DICLOFENAC SODIUM [Concomitant]
     Active Substance: DICLOFENAC SODIUM
  16. FLUTICASONE PROPIONATE [Concomitant]
     Active Substance: FLUTICASONE PROPIONATE
  17. ASCORBIC ACID [Concomitant]
     Active Substance: ASCORBIC ACID
  18. BECLOMETHASONE DIPROPIONATE [Concomitant]
     Active Substance: BECLOMETHASONE DIPROPIONATE
  19. IRON [Concomitant]
     Active Substance: IRON
  20. LIDOCAINE [Concomitant]
     Active Substance: LIDOCAINE
  21. RIZATRIPTAN [Concomitant]
     Active Substance: RIZATRIPTAN
  22. BUMETANIDE [Concomitant]
     Active Substance: BUMETANIDE
  23. OXYGEN [Concomitant]
     Active Substance: OXYGEN
  24. ACETAZOLAMIDE [Concomitant]
     Active Substance: ACETAZOLAMIDE
  25. HYOSCYAMINE SULFATE [Concomitant]
     Active Substance: HYOSCYAMINE SULFATE
  26. VITAMIN B COMPLEX [Concomitant]
     Active Substance: CYANOCOBALAMIN\DEXPANTHENOL\NIACINAMIDE\PYRIDOXINE HYDROCHLORIDE\RIBOFLAVIN 5^-PHOSPHATE SODIUM\THIA
  27. VITAMIN D3 [Concomitant]
     Active Substance: CHOLECALCIFEROL
  28. IBUPROFEN [Concomitant]
     Active Substance: IBUPROFEN
  29. EMGALITY [Concomitant]
     Active Substance: GALCANEZUMAB-GNLM
  30. LORATADINE [Concomitant]
     Active Substance: LORATADINE
  31. ONDANSETRON HYDROCHLORIDE [Concomitant]
     Active Substance: ONDANSETRON HYDROCHLORIDE

REACTIONS (6)
  - Dyspnoea [Unknown]
  - Cardiac ventricular thrombosis [Unknown]
  - Epistaxis [Unknown]
  - Chest pain [Recovered/Resolved]
  - Blood pressure increased [Unknown]
  - Fatigue [Unknown]

NARRATIVE: CASE EVENT DATE: 20240921
